FAERS Safety Report 7427497-7 (Version None)
Quarter: 2011Q2

REPORT INFORMATION
  Report Type: 
  Country: None (occurrence: None)
  Receive Date: 20110420
  Receipt Date: 20110411
  Transmission Date: 20111010
  Serious: Yes (Death, Life-Threatening, Hospitalization, Disabling, Other)
  Sender: FDA-Public Use
  Company Number: US-BAYER-2011-031572

PATIENT
  Sex: Male

DRUGS (2)
  1. CIPRO [Suspect]
     Indication: RESPIRATORY TRACT INFECTION
     Route: 048
  2. AVELOX [Suspect]
     Indication: RESPIRATORY TRACT INFECTION
     Route: 048

REACTIONS (1)
  - DEATH [None]
